FAERS Safety Report 22313654 (Version 1)
Quarter: 2023Q2

REPORT INFORMATION
  Report Type: Spontaneous
  Country: CA (occurrence: CA)
  Receive Date: 20230512
  Receipt Date: 20230512
  Transmission Date: 20230722
  Serious: Yes (Hospitalization, Other)
  Sender: FDA-Public Use
  Company Number: CA-TAKEDA-2023TUS043897

PATIENT
  Age: 53 Year
  Sex: Female

DRUGS (3)
  1. ENTYVIO [Suspect]
     Active Substance: VEDOLIZUMAB
     Indication: Product used for unknown indication
     Dosage: UNK
     Route: 042
     Dates: end: 202303
  2. PREDNISONE [Concomitant]
     Active Substance: PREDNISONE
     Dosage: UNK
     Dates: start: 1998
  3. AZATHIOPRINE [Concomitant]
     Active Substance: AZATHIOPRINE
     Dosage: UNK

REACTIONS (6)
  - Rectal haemorrhage [Unknown]
  - Defaecation urgency [Unknown]
  - Asthenia [Unknown]
  - Mucous stools [Unknown]
  - Abdominal pain [Unknown]
  - Drug ineffective [Unknown]

NARRATIVE: CASE EVENT DATE: 20221101
